FAERS Safety Report 8057061-0 (Version None)
Quarter: 2012Q1

REPORT INFORMATION
  Report Type: 
  Country: None (occurrence: None)
  Receive Date: 20120119
  Receipt Date: 20120116
  Transmission Date: 20120608
  Serious: Yes (Other)
  Sender: FDA-Public Use
  Company Number: US-ABBOTT-12P-163-0893242-00

PATIENT
  Age: 7 Week
  Sex: Female

DRUGS (1)
  1. FERROUS SULFATE TAB [Suspect]
     Indication: PRODUCT USED FOR UNKNOWN INDICATION
     Dosage: DAILY, INGESTED 11/2 OZ (400MG/KG IRON)

REACTIONS (6)
  - FONTANELLE DEPRESSED [None]
  - TOXICITY TO VARIOUS AGENTS [None]
  - HAEMODYNAMIC INSTABILITY [None]
  - ACCIDENTAL OVERDOSE [None]
  - LETHARGY [None]
  - HYPOTENSION [None]
